FAERS Safety Report 8334064-X (Version None)
Quarter: 2012Q2

REPORT INFORMATION
  Report Type: 
  Country: None (occurrence: None)
  Receive Date: 20120503
  Receipt Date: 20120419
  Transmission Date: 20120825
  Serious: Yes (Other)
  Sender: FDA-Public Use
  Company Number: CA-ROCHE-1006027

PATIENT
  Sex: Female

DRUGS (6)
  1. TYLENOL (CAPLET) [Suspect]
     Indication: PRODUCT USED FOR UNKNOWN INDICATION
  2. XOLAIR [Suspect]
     Dates: start: 20111110
  3. SERTRALINE HYDROCHLORIDE [Concomitant]
  4. XOLAIR [Suspect]
     Indication: ASTHMA
     Route: 058
     Dates: start: 20100225
  5. NEXIUM [Concomitant]
  6. ZOLOFT [Concomitant]

REACTIONS (13)
  - SWELLING [None]
  - GLOSSODYNIA [None]
  - RASH PRURITIC [None]
  - FIBROMYALGIA [None]
  - UPPER-AIRWAY COUGH SYNDROME [None]
  - PYREXIA [None]
  - PRODUCTIVE COUGH [None]
  - PRURITUS [None]
  - ERYTHEMA [None]
  - BLOOD PRESSURE INCREASED [None]
  - HEART RATE INCREASED [None]
  - SEASONAL ALLERGY [None]
  - COUGH [None]
